FAERS Safety Report 24781944 (Version 1)
Quarter: 2024Q4

REPORT INFORMATION
  Report Type: Spontaneous
  Country: US (occurrence: None)
  Receive Date: 20241226
  Receipt Date: 20241226
  Transmission Date: 20250115
  Serious: Yes (Other)
  Sender: Public
  Company Number: None

PATIENT
  Age: 27 Year
  Sex: Female
  Weight: 56.25 kg

DRUGS (8)
  1. ARIPIPRAZOLE [Suspect]
     Active Substance: ARIPIPRAZOLE
     Indication: Kleptomania
     Dosage: OTHER QUANTITY : 1 TABLET(S);?FREQUENCY : DAILY;?
     Route: 048
     Dates: start: 20241015, end: 20241208
  2. LAMOTRIGINE [Concomitant]
     Active Substance: LAMOTRIGINE
  3. TRAZODONE [Concomitant]
     Active Substance: TRAZODONE HYDROCHLORIDE
  4. GUANFACINE [Concomitant]
     Active Substance: GUANFACINE
  5. BUPROPION [Concomitant]
     Active Substance: BUPROPION
  6. GABAPENTIN [Concomitant]
     Active Substance: GABAPENTIN
  7. VENLAFAXINE [Concomitant]
     Active Substance: VENLAFAXINE HYDROCHLORIDE
  8. NALTREXONE [Concomitant]
     Active Substance: NALTREXONE

REACTIONS (3)
  - Product communication issue [None]
  - Theft [None]
  - Crime [None]

NARRATIVE: CASE EVENT DATE: 20241015
